FAERS Safety Report 9049974 (Version 2)
Quarter: 2013Q1

REPORT INFORMATION
  Report Type: Spontaneous
  Country: CA (occurrence: CA)
  Receive Date: 20130205
  Receipt Date: 20130320
  Transmission Date: 20140127
  Serious: Yes (Hospitalization)
  Sender: FDA-Public Use
  Company Number: CA-ELI_LILLY_AND_COMPANY-CA201301009137

PATIENT
  Age: 83 Year
  Sex: Male

DRUGS (18)
  1. FORTEO [Suspect]
     Indication: OSTEOPOROSIS
     Dosage: 20 UG, QD
     Route: 058
     Dates: start: 20121015, end: 20121227
  2. FORTEO [Suspect]
     Dosage: 20 UG, QD
     Route: 058
     Dates: start: 20130113
  3. BIOCAL-D [Concomitant]
  4. ACEBUTOLOL [Concomitant]
  5. LASIX [Concomitant]
  6. PREDNISONE [Concomitant]
  7. PLAVIX [Concomitant]
  8. VITA 3B [Concomitant]
  9. GABAPENTIN [Concomitant]
  10. DOCUSATE SODIUM [Concomitant]
  11. ASAPHEN [Concomitant]
  12. PANTOPRAZOLE [Concomitant]
  13. CITALOPRAM [Concomitant]
  14. METHOTREXATE [Concomitant]
  15. EURO FOLIC [Concomitant]
  16. OXAZEPAM [Concomitant]
  17. ALFUZOSIN [Concomitant]
  18. TYLENOL ARTHRITIS [Concomitant]

REACTIONS (1)
  - Influenza [Recovered/Resolved]
